FAERS Safety Report 6347123 (Version 1)
Quarter: 2020Q3

REPORT INFORMATION
  Report Type: Report from Study
  Country: DK (occurrence: DK)
  Receive Date: 20070702
  Receipt Date: 20070702
  Transmission Date: 20201105
  Serious: Yes (Death)
  Sender: FDA-Public Use
  Company Number: DK-JNJFOC-20030801908

PATIENT
  Age: 73 Year
  Sex: Female
  Weight: 45 kg

DRUGS (8)
  1. ABCIXIMAB [Suspect]
     Active Substance: ABCIXIMAB
     Indication: MYOCARDIAL INFARCTION
     Route: 042
  2. ASPIRIN. [Concomitant]
     Active Substance: ASPIRIN
  3. METHOTREXATE. [Concomitant]
     Active Substance: METHOTREXATE
  4. HEPARIN [Concomitant]
     Active Substance: HEPARIN SODIUM
  5. FOLIC ACID. [Concomitant]
     Active Substance: FOLIC ACID
  6. ABCIXIMAB [Suspect]
     Active Substance: ABCIXIMAB
     Indication: MYOCARDIAL INFARCTION
     Route: 042
  7. RETEPLASE [Suspect]
     Active Substance: RETEPLASE
     Indication: MYOCARDIAL INFARCTION
     Route: 042
  8. PLACEBO [Suspect]
     Active Substance: UNSPECIFIED INGREDIENT
     Indication: MYOCARDIAL INFARCTION
     Route: 042

REACTIONS (3)
  - Drug interaction [None]
  - Cerebral haematoma [Fatal]
  - Loss of consciousness [None]

NARRATIVE: CASE EVENT DATE: 20030805
